FAERS Safety Report 12204388 (Version 4)
Quarter: 2017Q1

REPORT INFORMATION
  Report Type: Report from Study
  Country: BR (occurrence: BR)
  Receive Date: 20160323
  Receipt Date: 20170316
  Transmission Date: 20170428
  Serious: Yes (Hospitalization, Other)
  Sender: FDA-Public Use
  Company Number: PHHY2016BR037684

PATIENT
  Age: 14 Year
  Sex: Female
  Weight: 46 kg

DRUGS (4)
  1. EXJADE [Suspect]
     Active Substance: DEFERASIROX
     Indication: SICKLE CELL ANAEMIA
     Dosage: 2 DF (25 MG/KG), QD
     Route: 048
     Dates: start: 20130306
  2. EXJADE [Suspect]
     Active Substance: DEFERASIROX
     Dosage: 1000 MG, QD (2 X 500 MG)
     Route: 048
  3. LEVOTHYROXINE. [Concomitant]
     Active Substance: LEVOTHYROXINE
     Indication: HYPOTHYROIDISM
     Dosage: 75 MG, QD
     Route: 065
  4. EXJADE [Suspect]
     Active Substance: DEFERASIROX
     Dosage: 750 MG, QD
     Route: 048

REACTIONS (11)
  - Headache [Recovered/Resolved]
  - Pharyngeal oedema [Recovering/Resolving]
  - Pyrexia [Recovered/Resolved]
  - Liver abscess [Unknown]
  - Serum ferritin increased [Unknown]
  - Chromaturia [Recovering/Resolving]
  - Liver abscess [Recovered/Resolved]
  - Renal pain [Recovered/Resolved]
  - Urinary bladder haemorrhage [Unknown]
  - Blood urine present [Recovering/Resolving]
  - Erythema [Unknown]

NARRATIVE: CASE EVENT DATE: 20160308
